FAERS Safety Report 18744949 (Version 3)
Quarter: 2021Q2

REPORT INFORMATION
  Report Type: Spontaneous
  Country: JP (occurrence: JP)
  Receive Date: 20210115
  Receipt Date: 20210426
  Transmission Date: 20210717
  Serious: Yes (Other)
  Sender: FDA-Public Use
  Company Number: NVSJ2021JP000771

PATIENT
  Age: 66 Year
  Sex: Male

DRUGS (2)
  1. TASIGNA [Suspect]
     Active Substance: NILOTINIB
     Indication: CHRONIC MYELOID LEUKAEMIA
     Dosage: 800 MG
     Route: 048
     Dates: start: 199605
  2. TASIGNA [Suspect]
     Active Substance: NILOTINIB
     Dosage: 400 MG
     Route: 048
     Dates: start: 199605

REACTIONS (3)
  - Angiopathy [Unknown]
  - Ascites [Recovered/Resolved]
  - Renal impairment [Not Recovered/Not Resolved]

NARRATIVE: CASE EVENT DATE: 1996
